FAERS Safety Report 9405636 (Version 5)
Quarter: 2013Q3

REPORT INFORMATION
  Report Type: Report from Study
  Country: US (occurrence: US)
  Receive Date: 20130717
  Receipt Date: 20130903
  Transmission Date: 20140515
  Serious: Yes (Death, Hospitalization, Other)
  Sender: FDA-Public Use
  Company Number: US-ALEXION PHARMACEUTICALS INC.-A201301606

PATIENT
  Age: 54 Year
  Sex: Male

DRUGS (1)
  1. SOLIRIS [Suspect]
     Indication: HAEMOLYTIC URAEMIC SYNDROME
     Dosage: UNK
     Route: 042

REACTIONS (6)
  - Staphylococcal infection [Fatal]
  - Neuropathy peripheral [Unknown]
  - Mesenteric neoplasm [Unknown]
  - Metastases to liver [Not Recovered/Not Resolved]
  - Malaise [Unknown]
  - White blood cell count decreased [Unknown]
